FAERS Safety Report 20694601 (Version 2)
Quarter: 2022Q2

REPORT INFORMATION
  Report Type: Report from Study
  Country: GB (occurrence: GB)
  Receive Date: 20220411
  Receipt Date: 20220425
  Transmission Date: 20220721
  Serious: Yes (Hospitalization, Other)
  Sender: FDA-Public Use
  Company Number: GB-BRISTOL-MYERS SQUIBB COMPANY-2022-017304

PATIENT
  Age: 48 Year
  Sex: Male

DRUGS (4)
  1. NIVOLUMAB [Suspect]
     Active Substance: NIVOLUMAB
     Indication: Soft tissue sarcoma
     Route: 065
     Dates: start: 20220216, end: 20220302
  2. SUNITINIB [Suspect]
     Active Substance: SUNITINIB
     Indication: Soft tissue sarcoma
     Route: 048
     Dates: start: 20220202, end: 20220303
  3. MESALAMINE [Concomitant]
     Active Substance: MESALAMINE
     Indication: Product used for unknown indication
     Route: 065
     Dates: start: 20220315, end: 20220317
  4. ACETAMINOPHEN [Concomitant]
     Active Substance: ACETAMINOPHEN
     Indication: Product used for unknown indication
     Dosage: PRN
     Route: 065

REACTIONS (2)
  - Rectal haemorrhage [Recovered/Resolved]
  - Pneumonitis [Unknown]

NARRATIVE: CASE EVENT DATE: 20220316
